FAERS Safety Report 9786682 (Version 3)
Quarter: 2014Q1

REPORT INFORMATION
  Report Type: Spontaneous
  Country: KR (occurrence: KR)
  Receive Date: 20131227
  Receipt Date: 20140203
  Transmission Date: 20141002
  Serious: Yes (Hospitalization, Other)
  Sender: FDA-Public Use
  Company Number: KR-CELGENEUS-286-21880-13123120

PATIENT
  Age: 59 Year
  Sex: Male

DRUGS (9)
  1. REVLIMID [Suspect]
     Indication: PLASMA CELL MYELOMA
     Route: 048
     Dates: start: 20111128
  2. REVLIMID [Suspect]
     Route: 048
     Dates: start: 20120109, end: 20131217
  3. REVLIMID [Suspect]
     Route: 048
     Dates: start: 20111202, end: 20131201
  4. CITOPCIN [Concomitant]
     Indication: INFECTION PROPHYLAXIS
     Dosage: 1000 MILLIGRAM
     Route: 048
     Dates: start: 20131111, end: 20131210
  5. ASPIRIN PROTECT [Concomitant]
     Indication: ANTICOAGULANT THERAPY
     Dosage: 100 MILLIGRAM
     Route: 048
     Dates: start: 20131111, end: 20131210
  6. DEXAMETHASONE [Concomitant]
     Indication: PROPHYLAXIS
     Route: 065
     Dates: start: 20110916, end: 20111118
  7. DEXAMETHASONE [Concomitant]
     Indication: PLASMA CELL MYELOMA
     Dosage: 40 MILLIGRAM
     Route: 048
     Dates: start: 20131111, end: 20131115
  8. CYTOTEC [Concomitant]
     Indication: PROPHYLAXIS AGAINST GASTROINTESTINAL ULCER
     Dosage: 400 MICROGRAM
     Route: 048
     Dates: start: 20131111, end: 20131115
  9. MUCOSTA [Concomitant]
     Indication: PROPHYLAXIS AGAINST GASTROINTESTINAL ULCER
     Dosage: 200 MILLIGRAM
     Route: 048
     Dates: start: 20131111, end: 20131210

REACTIONS (1)
  - Acute myeloid leukaemia [Not Recovered/Not Resolved]
